FAERS Safety Report 9702872 (Version 2)
Quarter: 2013Q4

REPORT INFORMATION
  Report Type: Spontaneous
  Country: US (occurrence: US)
  Receive Date: 20131121
  Receipt Date: 20131224
  Transmission Date: 20140711
  Serious: Yes (Other)
  Sender: FDA-Public Use
  Company Number: US-GILEAD-2013-0088418

PATIENT
  Age: 48 Year
  Sex: Female

DRUGS (4)
  1. LETAIRIS [Suspect]
     Indication: PULMONARY HYPERTENSION
     Dosage: 10 MG, QD
     Route: 048
     Dates: start: 20090226
  2. LETAIRIS [Suspect]
     Indication: CONNECTIVE TISSUE DISORDER
  3. REVATIO [Concomitant]
  4. COUMADIN                           /00014802/ [Concomitant]

REACTIONS (3)
  - Systemic lupus erythematosus [Unknown]
  - Pain [Unknown]
  - Dyspnoea [Unknown]
